FAERS Safety Report 13688095 (Version 3)
Quarter: 2017Q3

REPORT INFORMATION
  Report Type: Spontaneous
  Country: US (occurrence: US)
  Receive Date: 20170626
  Receipt Date: 20170908
  Transmission Date: 20171127
  Serious: No
  Sender: FDA-Public Use
  Company Number: US-PFIZER INC-2017271251

PATIENT
  Age: 58 Year
  Sex: Male

DRUGS (6)
  1. LYRICA [Suspect]
     Active Substance: PREGABALIN
     Indication: PAIN
  2. LYRICA [Suspect]
     Active Substance: PREGABALIN
     Indication: NEURALGIA
     Dosage: 50 MG, 3X/DAY
     Dates: start: 201010
  3. KEPPRA [Concomitant]
     Active Substance: LEVETIRACETAM
     Indication: SEIZURE
     Dosage: 150 MG, DAILY
     Route: 048
     Dates: start: 201010
  4. RESTASIS [Concomitant]
     Active Substance: CYCLOSPORINE
     Indication: DRY EYE
     Dosage: 4 GTT, DAILY (2 DROPS PER EYE)
     Route: 047
     Dates: start: 201301
  5. LYRICA [Suspect]
     Active Substance: PREGABALIN
     Indication: BACK PAIN
     Dosage: 100MG IN THE MORNING AND 50MG BEFORE BEDTIME
  6. AXIRON [Concomitant]
     Active Substance: TESTOSTERONE
     Indication: BONE DENSITY ABNORMAL
     Dosage: UNK, 1X/DAY
     Dates: start: 201501

REACTIONS (2)
  - Intentional product misuse [Not Recovered/Not Resolved]
  - Flushing [Not Recovered/Not Resolved]

NARRATIVE: CASE EVENT DATE: 201010
